FAERS Safety Report 9506108 (Version 2)
Quarter: 2014Q1

REPORT INFORMATION
  Report Type: Spontaneous
  Country: US (occurrence: None)
  Receive Date: 20130305
  Receipt Date: 20130503
  Transmission Date: 20141002
  Serious: No
  Sender: FDA-Public Use
  Company Number: 1000040004

PATIENT
  Age: 73 Year
  Sex: Female

DRUGS (9)
  1. DALIRESP [Suspect]
     Indication: CHRONIC OBSTRUCTIVE PULMONARY DISEASE
     Dosage: (500 MCG, 1 IN 1 D), ORAL
     Route: 048
     Dates: start: 20121028, end: 20121030
  2. FOLIC ACID (FOLIC ACID) (FOLIC ACID) [Concomitant]
  3. METHOTREXATE (METHOTREXATE) (METHOTREXATE) [Concomitant]
  4. PREDNISONE (PREDNISONE) (PREDNISONE) [Concomitant]
  5. ALBUTEROL SULFATE (SALBUTAMOL SULFATE) (SALBUTAMOL SULFATE) [Concomitant]
  6. SPIRIVA (TIOTROPIUM BROMIDE) (TIOTROPIUM BROMIDE) [Concomitant]
  7. CALCIUM (CALCIUM) (CALCIUM) [Concomitant]
  8. ASPIRIN (ACETYLSALICYLIC ACID) [Concomitant]
  9. DULERA [Concomitant]

REACTIONS (6)
  - Insomnia [None]
  - Dyspnoea [None]
  - Condition aggravated [None]
  - Abnormal dreams [None]
  - Dysphonia [None]
  - Dizziness [None]
